FAERS Safety Report 6449176-5 (Version None)
Quarter: 2009Q4

REPORT INFORMATION
  Report Type: 
  Country: None (occurrence: None)
  Receive Date: 20091120
  Receipt Date: 20091111
  Transmission Date: 20100525
  Serious: Yes (Other)
  Sender: FDA-Public Use
  Company Number: US-JNJFOC-20091103460

PATIENT

DRUGS (1)
  1. INFLIXIMAB [Suspect]
     Indication: CROHN'S DISEASE
     Route: 042

REACTIONS (4)
  - BLINDNESS TRANSIENT [None]
  - GENERALISED OEDEMA [None]
  - HYPERSENSITIVITY [None]
  - LUPUS-LIKE SYNDROME [None]
